FAERS Safety Report 5658493-8 (Version None)
Quarter: 2008Q1

REPORT INFORMATION
  Report Type: 
  Country: None (occurrence: None)
  Receive Date: 20080310
  Receipt Date: 20070416
  Transmission Date: 20080703
  Serious: No
  Sender: FDA-Public Use
  Company Number: US-BAYER-200710559BCC

PATIENT
  Age: 20 Year
  Sex: Female
  Weight: 64 kg

DRUGS (4)
  1. ALEVE [Suspect]
     Indication: HEADACHE
     Dosage: TOTAL DAILY DOSE: 220 MG  UNIT DOSE: 220 MG
     Route: 048
     Dates: start: 20070220
  2. ENERGY DRINK [Suspect]
     Indication: DRUG USE FOR UNKNOWN INDICATION
     Route: 048
     Dates: start: 20070220
  3. GNC WOMENS VITAMINS [Concomitant]
  4. FISH OIL [Concomitant]
     Route: 048

REACTIONS (3)
  - DYSPHAGIA [None]
  - DYSPNOEA [None]
  - PALPITATIONS [None]
